FAERS Safety Report 7914877-6 (Version None)
Quarter: 2011Q4

REPORT INFORMATION
  Report Type: 
  Country: None (occurrence: None)
  Receive Date: 20111115
  Receipt Date: 20111031
  Transmission Date: 20120403
  Serious: Yes (Hospitalization)
  Sender: FDA-Public Use
  Company Number: US-ROCHE-1011524

PATIENT
  Sex: Female

DRUGS (2)
  1. PEGINTERFERON ALFA-2A [Suspect]
     Indication: HEPATITIS C
     Dates: start: 20110513
  2. COPEGUS [Suspect]
     Indication: HEPATITIS C
     Dates: start: 20110513

REACTIONS (2)
  - HEPATIC ENZYME INCREASED [None]
  - AMMONIA INCREASED [None]
